FAERS Safety Report 5986810-8 (Version None)
Quarter: 2008Q4

REPORT INFORMATION
  Report Type: 
  Country: None (occurrence: None)
  Receive Date: 20081209
  Receipt Date: 20080905
  Transmission Date: 20090506
  Serious: No
  Sender: FDA-Public Use
  Company Number: US-AMGEN-KDL306007

PATIENT
  Sex: Female

DRUGS (2)
  1. ENBREL [Suspect]
     Indication: RHEUMATOID ARTHRITIS
     Route: 058
     Dates: start: 19981201
  2. ENBREL [Suspect]
     Indication: PSORIASIS

REACTIONS (13)
  - CHILLS [None]
  - COUGH [None]
  - DECREASED APPETITE [None]
  - EAR INFECTION [None]
  - EAR PRURITUS [None]
  - FEELING HOT [None]
  - FUNGAL INFECTION [None]
  - HEADACHE [None]
  - MALAISE [None]
  - MYALGIA [None]
  - NASOPHARYNGITIS [None]
  - PRODUCTIVE COUGH [None]
  - SINUSITIS [None]
